FAERS Safety Report 6387922-X (Version None)
Quarter: 2009Q4

REPORT INFORMATION
  Report Type: 
  Country: None (occurrence: None)
  Receive Date: 20091005
  Receipt Date: 20090925
  Transmission Date: 20100525
  Serious: Yes (Other)
  Sender: FDA-Public Use
  Company Number: DK-ROCHE-658792

PATIENT
  Sex: Female

DRUGS (2)
  1. LARIAM [Suspect]
     Indication: MALARIA
     Dosage: THE FIRST PERIOD OF TREATMENT WAS TWO YEARS AGO.
     Route: 048
  2. LARIAM [Suspect]
     Dosage: FREQUENCY: QWK (PER WEEK).
     Route: 048
     Dates: start: 20090824

REACTIONS (2)
  - ACNE [None]
  - AMENORRHOEA [None]
